FAERS Safety Report 7977087-2 (Version None)
Quarter: 2011Q4

REPORT INFORMATION
  Report Type: 
  Country: None (occurrence: None)
  Receive Date: 20111213
  Receipt Date: 20111113
  Transmission Date: 20120403
  Serious: No
  Sender: FDA-Public Use
  Company Number: US-AMGEN-USASP2011060005

PATIENT
  Age: 49 Year
  Sex: Female

DRUGS (1)
  1. ENBREL [Suspect]
     Indication: PSORIASIS
     Dosage: 50 MG, QWK
     Dates: start: 20060123

REACTIONS (8)
  - HYPERHIDROSIS [None]
  - INCORRECT STORAGE OF DRUG [None]
  - ABDOMINAL PAIN UPPER [None]
  - NAUSEA [None]
  - DIZZINESS [None]
  - MALAISE [None]
  - ABDOMINAL DISCOMFORT [None]
  - ASTHENIA [None]
